FAERS Safety Report 8305760-5 (Version None)
Quarter: 2012Q2

REPORT INFORMATION
  Report Type: 
  Country: None (occurrence: None)
  Receive Date: 20120423
  Receipt Date: 20120416
  Transmission Date: 20120825
  Serious: Yes (Other)
  Sender: FDA-Public Use
  Company Number: DE-B.I. PHARMACEUTICALS,INC./RIDGEFIELD-2012-DE-00367DE

PATIENT
  Sex: Male
  Weight: 85 kg

DRUGS (4)
  1. BISOPROLOL FUMARATE [Concomitant]
  2. DELIX PLUS [Concomitant]
  3. PRADAXA [Suspect]
     Indication: ATRIAL FIBRILLATION
     Dosage: 110 MG
     Route: 048
     Dates: start: 20111118, end: 20111128
  4. PRADAXA [Suspect]
     Indication: SYNCOPE

REACTIONS (1)
  - PULMONARY EMBOLISM [None]
